FAERS Safety Report 7265909-2 (Version None)
Quarter: 2011Q1

REPORT INFORMATION
  Report Type: 
  Country: None (occurrence: None)
  Receive Date: 20110131
  Receipt Date: 20110120
  Transmission Date: 20110831
  Serious: Yes (Other)
  Sender: FDA-Public Use
  Company Number: B0696331A

PATIENT
  Sex: Female

DRUGS (2)
  1. NORTRIPTYLINE [Concomitant]
     Indication: MIGRAINE PROPHYLAXIS
     Route: 065
  2. ZYBAN [Suspect]
     Route: 065

REACTIONS (2)
  - DIPLOPIA [None]
  - VISUAL IMPAIRMENT [None]
